FAERS Safety Report 6819466-2 (Version None)
Quarter: 2010Q3

REPORT INFORMATION
  Report Type: 
  Country: None (occurrence: None)
  Receive Date: 20100707
  Receipt Date: 20100629
  Transmission Date: 20110219
  Serious: Yes (Hospitalization)
  Sender: FDA-Public Use
  Company Number: GB-ASTRAZENECA-2010SE26356

PATIENT
  Sex: Female
  Weight: 93 kg

DRUGS (5)
  1. ZOLADEX [Suspect]
     Indication: UTERINE LEIOMYOMA
     Route: 058
     Dates: start: 20100518
  2. ZOLADEX [Suspect]
     Indication: POLYCYSTIC OVARIES
     Route: 058
     Dates: start: 20100518
  3. ZOLADEX [Suspect]
     Indication: BLADDER DYSFUNCTION
     Route: 058
     Dates: start: 20100518
  4. HRT TABLETS [Concomitant]
     Route: 048
  5. LEVOTHYROXINE SODIUM [Concomitant]
     Indication: HYPOTHYROIDISM
     Route: 048
     Dates: start: 20030101

REACTIONS (8)
  - BRADYCARDIA [None]
  - CHEST PAIN [None]
  - DIZZINESS [None]
  - FLUID RETENTION [None]
  - GASTRIC DILATATION [None]
  - HEADACHE [None]
  - HYPOTENSION [None]
  - JOINT SWELLING [None]
